FAERS Safety Report 9477870 (Version 1)
Quarter: 2013Q3

REPORT INFORMATION
  Report Type: Other
  Country: GB (occurrence: GB)
  Receive Date: 20130827
  Receipt Date: 20130827
  Transmission Date: 20140515
  Serious: Yes (Other)
  Sender: FDA-Public Use
  Company Number: GB-LUPIN PHARMACEUTICALS INC.-E2B_00001193

PATIENT
  Age: 67 Year
  Sex: Female

DRUGS (2)
  1. LISINOPRIL [Suspect]
     Indication: HYPERTENSION
     Dosage: 2.5MG - 7.5MG
     Route: 065
  2. LISINOPRIL [Suspect]
     Route: 065

REACTIONS (3)
  - Rosacea [Recovering/Resolving]
  - Fibromyalgia [Unknown]
  - Drug ineffective [Unknown]
